FAERS Safety Report 11272416 (Version 1)
Quarter: 2015Q3

REPORT INFORMATION
  Report Type: Spontaneous
  Country: SE (occurrence: SE)
  Receive Date: 20150715
  Receipt Date: 20150715
  Transmission Date: 20151125
  Serious: Yes (Disabling)
  Sender: FDA-Public Use
  Company Number: SE-TEVA-578207ISR

PATIENT
  Age: 81 Year
  Sex: Female

DRUGS (1)
  1. ENALAPRIL 5 MILIGRAM TABLETTER PER ORAL [Suspect]
     Active Substance: ENALAPRIL
     Route: 048

REACTIONS (1)
  - Pain in extremity [Not Recovered/Not Resolved]
